FAERS Safety Report 21479877 (Version 1)
Quarter: 2022Q4

REPORT INFORMATION
  Report Type: Spontaneous
  Country: RO (occurrence: RO)
  Receive Date: 20221019
  Receipt Date: 20221019
  Transmission Date: 20230112
  Serious: Yes (Life-Threatening, Other)
  Sender: FDA-Public Use
  Company Number: None

PATIENT
  Age: 63 Year
  Sex: Male
  Weight: 85 kg

DRUGS (2)
  1. VANCOMYCIN [Suspect]
     Active Substance: VANCOMYCIN
     Indication: Muscle abscess
     Dosage: 1 GRAM, Q3D
     Route: 042
     Dates: start: 20220808, end: 20220824
  2. CEFTRIAXONE MIP [Concomitant]
     Dosage: UNK
     Route: 065

REACTIONS (3)
  - Agranulocytosis [Recovering/Resolving]
  - Neutropenia [Recovering/Resolving]
  - Leukopenia [Recovering/Resolving]

NARRATIVE: CASE EVENT DATE: 20220824
